FAERS Safety Report 16779840 (Version 1)
Quarter: 2019Q3

REPORT INFORMATION
  Report Type: Spontaneous
  Country: SE (occurrence: SE)
  Receive Date: 20190906
  Receipt Date: 20190906
  Transmission Date: 20191005
  Serious: Yes (Other)
  Sender: FDA-Public Use
  Company Number: SE-TEVA-2019-SE-1102001

PATIENT
  Age: 53 Year
  Sex: Male

DRUGS (3)
  1. DOXYFERM [Suspect]
     Active Substance: DOXYCYCLINE
     Indication: PNEUMONIA MYCOPLASMAL
     Dosage: 200 MILLIGRAM, ONCE A DAY
     Dates: start: 20190805, end: 20190806
  2. OLANZAPINE. [Concomitant]
     Active Substance: OLANZAPINE
     Dosage: 1 TABLET IF NECESSARY
  3. ACETYLCYSTEINE. [Concomitant]
     Active Substance: ACETYLCYSTEINE
     Dosage: 1 TABLET X 3 IF NECESSARY

REACTIONS (3)
  - Dyspnoea [Recovered/Resolved]
  - Throat irritation [Recovered/Resolved]
  - Pharyngeal swelling [Recovered/Resolved]

NARRATIVE: CASE EVENT DATE: 20190806
